FAERS Safety Report 7892344-6 (Version None)
Quarter: 2011Q4

REPORT INFORMATION
  Report Type: 
  Country: None (occurrence: None)
  Receive Date: 20111103
  Receipt Date: 20111103
  Transmission Date: 20120403
  Serious: Yes (Other)
  Sender: FDA-Public Use
  Company Number: None

PATIENT
  Age: 27 Year
  Sex: Female

DRUGS (1)
  1. COPAXONE [Suspect]
     Dosage: 20 MG DAILY SUBCUTANEOUS
     Route: 058
     Dates: start: 20100928

REACTIONS (2)
  - DYSSTASIA [None]
  - TREMOR [None]
